FAERS Safety Report 25481372 (Version 3)
Quarter: 2025Q3

REPORT INFORMATION
  Report Type: Report from Study
  Country: US (occurrence: US)
  Receive Date: 20250626
  Receipt Date: 20250730
  Transmission Date: 20251020
  Serious: Yes (Hospitalization, Other)
  Sender: JOHNSON AND JOHNSON
  Company Number: US-JNJFOC-20250630200

PATIENT
  Age: 34 Year
  Sex: Female

DRUGS (3)
  1. SPRAVATO [Suspect]
     Active Substance: ESKETAMINE
     Indication: Depression
     Route: 045
     Dates: start: 20250501, end: 20250501
  2. SPRAVATO [Suspect]
     Active Substance: ESKETAMINE
     Route: 045
     Dates: start: 20250304, end: 20250424
  3. AMITRIPTYLINE [Concomitant]
     Active Substance: AMITRIPTYLINE
     Indication: Product used for unknown indication

REACTIONS (15)
  - Encephalitis [Unknown]
  - Hospitalisation [Unknown]
  - Haemorrhage [Unknown]
  - Cardiac arrest [Unknown]
  - Paralysis [Unknown]
  - Dyspnoea [Unknown]
  - Dyskinesia [Unknown]
  - Dropped head syndrome [Unknown]
  - Gait disturbance [Unknown]
  - Stupor [Unknown]
  - Malaise [Unknown]
  - Autonomic nervous system imbalance [Unknown]
  - Oxygen saturation abnormal [Unknown]
  - Physical examination abnormal [Unknown]
  - Hypersomnia [Unknown]

NARRATIVE: CASE EVENT DATE: 20250101
